FAERS Safety Report 23635443 (Version 2)
Quarter: 2024Q1

REPORT INFORMATION
  Report Type: Report from Study
  Country: US (occurrence: US)
  Receive Date: 20240315
  Receipt Date: 20240318
  Transmission Date: 20240410
  Serious: Yes (Other)
  Sender: FDA-Public Use
  Company Number: US-BIOGEN-2024BI01254987

PATIENT
  Sex: Female

DRUGS (1)
  1. TYSABRI [Suspect]
     Active Substance: NATALIZUMAB
     Indication: Multiple sclerosis
     Route: 050
     Dates: start: 20150202

REACTIONS (4)
  - Blood pressure increased [Recovered/Resolved]
  - Restless legs syndrome [Not Recovered/Not Resolved]
  - Stress [Unknown]
  - Poor quality sleep [Unknown]
